FAERS Safety Report 16465220 (Version 3)
Quarter: 2019Q3

REPORT INFORMATION
  Report Type: Report from Study
  Country: US (occurrence: US)
  Receive Date: 20190621
  Receipt Date: 20190723
  Transmission Date: 20191004
  Serious: Yes (Other)
  Sender: FDA-Public Use
  Company Number: US-MALLINCKRODT-T201904347

PATIENT
  Sex: Male

DRUGS (3)
  1. REPOSITORY CORTICOTROPIN INJECTION [Suspect]
     Active Substance: CORTICOTROPIN
     Dosage: 80 UNITS/1 ML MONDAY/THURSDAY
     Route: 058
     Dates: start: 20190611, end: 2019
  2. REPOSITORY CORTICOTROPIN INJECTION [Suspect]
     Active Substance: CORTICOTROPIN
     Indication: GLOMERULONEPHRITIS MEMBRANOUS
     Dosage: 80 UNITS/1 ML MONDAY/THURSDAY
     Route: 058
     Dates: start: 20181217, end: 201905
  3. REPOSITORY CORTICOTROPIN INJECTION [Suspect]
     Active Substance: CORTICOTROPIN
     Dosage: 80 UNITS/1 ML, TWO TIMES PER WEEK, TUESDAY/FRIDAY
     Route: 058
     Dates: start: 2019

REACTIONS (7)
  - Diabetes mellitus [Not Recovered/Not Resolved]
  - Sleep disorder [Recovering/Resolving]
  - Injection site bruising [Not Recovered/Not Resolved]
  - Product dose omission [Recovering/Resolving]
  - Treatment noncompliance [Recovering/Resolving]
  - Contusion [Recovering/Resolving]
  - Injection site pain [Unknown]
